FAERS Safety Report 25287049 (Version 1)
Quarter: 2025Q2

REPORT INFORMATION
  Report Type: Spontaneous
  Country: US (occurrence: US)
  Receive Date: 20250509
  Receipt Date: 20250509
  Transmission Date: 20250716
  Serious: No
  Sender: NOVARTIS
  Company Number: US-002147023-NVSC2025US074729

PATIENT
  Sex: Female

DRUGS (1)
  1. MEKINIST [Suspect]
     Active Substance: TRAMETINIB DIMETHYL SULFOXIDE
     Indication: Product used for unknown indication
     Dosage: UNK, QD
     Route: 048

REACTIONS (9)
  - Constipation [Unknown]
  - Product storage error [Unknown]
  - Oral mucosal eruption [Unknown]
  - Exfoliative rash [Unknown]
  - Pruritus [Unknown]
  - Scratch [Unknown]
  - Solar lentigo [Unknown]
  - Lip disorder [Unknown]
  - Herpes virus infection [Unknown]
